FAERS Safety Report 20145418 (Version 1)
Quarter: 2021Q4

REPORT INFORMATION
  Report Type: Spontaneous
  Country: CA (occurrence: CA)
  Receive Date: 20211203
  Receipt Date: 20211203
  Transmission Date: 20220304
  Serious: Yes (Hospitalization)
  Sender: FDA-Public Use
  Company Number: CA-TEVA-2021-CA-1982319

PATIENT
  Age: 65 Year
  Sex: Male
  Weight: 78 kg

DRUGS (15)
  1. CEPHALEXIN [Suspect]
     Active Substance: CEPHALEXIN
     Indication: Spontaneous bacterial peritonitis
     Dosage: 2000 MILLIGRAM DAILY;
     Route: 048
  2. CEFAZOLIN [Suspect]
     Active Substance: CEFAZOLIN
     Indication: Spontaneous bacterial peritonitis
     Dosage: 6 GRAM DAILY;
     Route: 042
  3. CEFTRIAXONE [Suspect]
     Active Substance: CEFTRIAXONE
     Indication: Evidence based treatment
     Dosage: 2 GRAM DAILY;
     Route: 042
  4. AMLODIPINE [Concomitant]
     Active Substance: AMLODIPINE BESYLATE
     Route: 065
  5. DULOXETINE HYDROCHLORIDE [Concomitant]
     Active Substance: DULOXETINE HYDROCHLORIDE
     Route: 048
  6. GABAPENTIN [Concomitant]
     Active Substance: GABAPENTIN
  7. LEVOTHYROXINE [Concomitant]
     Active Substance: LEVOTHYROXINE
  8. PANTOPRAZOLE [Concomitant]
     Active Substance: PANTOPRAZOLE
  9. POTASSIUM CHLORIDE [Concomitant]
     Active Substance: POTASSIUM CHLORIDE
  10. QUETIAPINE [Concomitant]
     Active Substance: QUETIAPINE
  11. ALBUTEROL [Concomitant]
     Active Substance: ALBUTEROL
  12. SYMBICORT [Concomitant]
     Active Substance: BUDESONIDE\FORMOTEROL FUMARATE DIHYDRATE
  13. THIAMINE [Concomitant]
     Active Substance: THIAMINE
  14. VITAMIN B6, B12 WITH IMG FOLIC ACID [Concomitant]
  15. VITAMIN D3 [Concomitant]
     Active Substance: CHOLECALCIFEROL

REACTIONS (4)
  - Asthenia [Not Recovered/Not Resolved]
  - Clostridium difficile infection [Not Recovered/Not Resolved]
  - Diarrhoea [Not Recovered/Not Resolved]
  - Fall [Not Recovered/Not Resolved]
